FAERS Safety Report 5982896-5 (Version None)
Quarter: 2008Q4

REPORT INFORMATION
  Report Type: 
  Country: None (occurrence: None)
  Receive Date: 20081125
  Receipt Date: 20061205
  Transmission Date: 20090506
  Serious: Yes (Death)
  Sender: FDA-Public Use
  Company Number: 2008MP000105

PATIENT
  Age: 38 Year
  Sex: Male

DRUGS (1)
  1. GLIADEL [Suspect]
     Indication: METASTASES TO SPINE
     Dosage: 23.1 MG;X1;ICAV

REACTIONS (2)
  - DISEASE PROGRESSION [None]
  - OFF LABEL USE [None]
